FAERS Safety Report 6581877-0 (Version None)
Quarter: 2010Q1

REPORT INFORMATION
  Report Type: 
  Country: None (occurrence: None)
  Receive Date: 20100212
  Receipt Date: 20100212
  Transmission Date: 20100710
  Serious: No
  Sender: FDA-Public Use
  Company Number: None

PATIENT
  Age: 64 Year
  Sex: Male
  Weight: 94.89 kg

DRUGS (1)
  1. FLUNISOLIDE [Suspect]
     Indication: CHRONIC OBSTRUCTIVE PULMONARY DISEASE
     Dates: start: 20090316, end: 20090331

REACTIONS (4)
  - CONVULSION [None]
  - COUGH [None]
  - SYNCOPE [None]
  - WHEEZING [None]
